FAERS Safety Report 19035397 (Version 1)
Quarter: 2021Q1

REPORT INFORMATION
  Report Type: Other
  Country: US (occurrence: US)
  Receive Date: 20210320
  Receipt Date: 20210320
  Transmission Date: 20210420
  Serious: No
  Sender: FDA-Public Use
  Company Number: US-ACORDA-ACO_168205_2021

PATIENT
  Sex: Male

DRUGS (2)
  1. INBRIJA [Suspect]
     Active Substance: LEVODOPA
     Indication: ON AND OFF PHENOMENON
  2. INBRIJA [Suspect]
     Active Substance: LEVODOPA
     Indication: PARKINSON^S DISEASE
     Dosage: 84 MILLIGRAM, PRN (NOT TO EXCEED 5 DOSES A DAY)

REACTIONS (7)
  - Cough [Recovered/Resolved]
  - Throat clearing [Unknown]
  - Dysphonia [Unknown]
  - Device difficult to use [Unknown]
  - Drug effect less than expected [Unknown]
  - Respiratory tract congestion [Recovered/Resolved]
  - Device issue [Unknown]
